FAERS Safety Report 21201293 (Version 1)
Quarter: 2022Q3

REPORT INFORMATION
  Report Type: Spontaneous
  Country: JP (occurrence: JP)
  Receive Date: 20220811
  Receipt Date: 20220811
  Transmission Date: 20221027
  Serious: Yes (Hospitalization, Other)
  Sender: FDA-Public Use
  Company Number: JP-BAYER-2022A109621

PATIENT
  Sex: Male

DRUGS (16)
  1. IOPAMIRON [Suspect]
     Active Substance: IOPAMIDOL
     Indication: Angiogram cerebral
     Dosage: ONCE
     Route: 013
     Dates: start: 20220524, end: 20220524
  2. LIDOCAINE [Concomitant]
     Active Substance: LIDOCAINE
     Indication: Anaesthesia procedure
     Dates: start: 20220524, end: 20220524
  3. HEPARIN SODIUM [Concomitant]
     Active Substance: HEPARIN SODIUM
     Indication: Anticoagulant therapy
     Route: 042
     Dates: start: 20220524, end: 20220524
  4. ISOTONIC SODIUM CHLORIDE SOLUTION [Concomitant]
     Active Substance: SODIUM CHLORIDE
     Indication: Catheterisation venous
     Route: 042
     Dates: start: 20220524, end: 20220524
  5. POLARAMINE [Concomitant]
     Active Substance: DEXCHLORPHENIRAMINE MALEATE
     Indication: Prophylaxis
     Route: 042
     Dates: start: 20220524, end: 20220524
  6. SOSEGON [PENTAZOCINE HYDROCHLORIDE] [Concomitant]
     Indication: Analgesic therapy
     Route: 042
     Dates: start: 20220524, end: 20220524
  7. CILOSTAZOL [Concomitant]
     Active Substance: CILOSTAZOL
     Dosage: UNK
     Dates: start: 20220225
  8. ATORVASTATIN [Concomitant]
     Active Substance: ATORVASTATIN
     Dosage: UNK
     Dates: start: 20220315
  9. ENTRESTO [Concomitant]
     Active Substance: SACUBITRIL\VALSARTAN
     Dosage: UNK
     Dates: start: 20220226
  10. MIYA-BM [Concomitant]
     Active Substance: CLOSTRIDIUM BUTYRICUM SPORES STRAIN M-55
     Dosage: UNK
     Dates: start: 20220226
  11. NEXIUM [Concomitant]
     Active Substance: ESOMEPRAZOLE MAGNESIUM
     Dosage: UNK
     Dates: start: 20220226
  12. SODIUM FERROUS CITRATE [Concomitant]
     Active Substance: SODIUM FERROUS CITRATE
     Dosage: UNK
     Dates: start: 20220303
  13. EDARAVONE [Concomitant]
     Active Substance: EDARAVONE
     Dosage: UNK
     Dates: start: 20220225
  14. ARGATROBAN [Concomitant]
     Active Substance: ARGATROBAN
     Dosage: UNK
     Dates: start: 20220225
  15. SERMION [NICERGOLINE] [Concomitant]
     Dosage: UNK
     Dates: end: 20220531
  16. PRIMPERAN [Concomitant]
     Active Substance: METOCLOPRAMIDE HYDROCHLORIDE
     Dosage: UNK
     Dates: end: 20220531

REACTIONS (3)
  - Contrast encephalopathy [Recovered/Resolved]
  - Injection site pain [Unknown]
  - Infusion site extravasation [Unknown]

NARRATIVE: CASE EVENT DATE: 20220524
